FAERS Safety Report 13571362 (Version 1)
Quarter: 2017Q2

REPORT INFORMATION
  Report Type: Spontaneous
  Country: US (occurrence: US)
  Receive Date: 20170523
  Receipt Date: 20170523
  Transmission Date: 20170830
  Serious: No
  Sender: FDA-Public Use
  Company Number: US-AMGEN-USASP2017075071

PATIENT
  Age: 42 Year
  Sex: Female
  Weight: 66.21 kg

DRUGS (1)
  1. ENBREL [Suspect]
     Active Substance: ETANERCEPT
     Indication: PSORIASIS
     Dosage: 50 MG, QWK
     Route: 058
     Dates: start: 20170507

REACTIONS (8)
  - Nasal congestion [Unknown]
  - Urine odour abnormal [Unknown]
  - Injection site pain [Unknown]
  - Back pain [Unknown]
  - Underdose [Unknown]
  - Headache [Unknown]
  - Oropharyngeal pain [Unknown]
  - Visual impairment [Unknown]

NARRATIVE: CASE EVENT DATE: 201705
